FAERS Safety Report 25684560 (Version 2)
Quarter: 2025Q4

REPORT INFORMATION
  Report Type: Spontaneous
  Country: US (occurrence: US)
  Receive Date: 20250815
  Receipt Date: 20251117
  Transmission Date: 20260117
  Serious: No
  Sender: HIKMA
  Company Number: US-HIKMA PHARMACEUTICALS USA INC.-US-H14001-25-08930

PATIENT
  Sex: Male

DRUGS (2)
  1. LISDEXAMFETAMINE [Suspect]
     Active Substance: LISDEXAMFETAMINE
     Indication: Attention deficit hyperactivity disorder
     Dosage: 60 MILLIGRAM, QD, IN THE MORNING
     Route: 048
  2. LISDEXAMFETAMINE [Suspect]
     Active Substance: LISDEXAMFETAMINE
     Indication: Binge eating

REACTIONS (2)
  - Drug ineffective [Unknown]
  - Product dose omission issue [Unknown]
